FAERS Safety Report 17429104 (Version 4)
Quarter: 2021Q3

REPORT INFORMATION
  Report Type: Report from Study
  Country: PA (occurrence: PA)
  Receive Date: 20200218
  Receipt Date: 20210812
  Transmission Date: 20211014
  Serious: Yes (Other)
  Sender: FDA-Public Use
  Company Number: NVSC2020PA041877

PATIENT
  Age: 45 Year
  Sex: Female

DRUGS (1)
  1. GILENYA [Suspect]
     Active Substance: FINGOLIMOD HYDROCHLORIDE
     Indication: MULTIPLE SCLEROSIS
     Dosage: 0.5 MG, QD
     Route: 048
     Dates: start: 20190926

REACTIONS (8)
  - Multiple sclerosis [Recovered/Resolved]
  - Feeling abnormal [Unknown]
  - Systemic lupus erythematosus [Not Recovered/Not Resolved]
  - Skin lesion [Unknown]
  - Arthralgia [Unknown]
  - Limb discomfort [Unknown]
  - Sjogren^s syndrome [Recovered/Resolved]
  - Erythema [Recovered/Resolved]

NARRATIVE: CASE EVENT DATE: 20200131
